FAERS Safety Report 15280491 (Version 4)
Quarter: 2018Q4

REPORT INFORMATION
  Report Type: Spontaneous
  Country: US (occurrence: US)
  Receive Date: 20180815
  Receipt Date: 20181011
  Transmission Date: 20190204
  Serious: Yes (Hospitalization, Other)
  Sender: FDA-Public Use
  Company Number: US-GLAXOSMITHKLINE-US2018GSK136771

PATIENT
  Sex: Female

DRUGS (2)
  1. BREO ELLIPTA [Suspect]
     Active Substance: FLUTICASONE FUROATE\VILANTEROL TRIFENATATE
     Indication: PRODUCT USED FOR UNKNOWN INDICATION
     Dosage: UNK
  2. ADVAIR DISKUS [Suspect]
     Active Substance: FLUTICASONE PROPIONATE\SALMETEROL XINAFOATE
     Dosage: UNK
     Route: 055
     Dates: start: 20180730

REACTIONS (12)
  - Pneumonia [Unknown]
  - Gastrointestinal disorder [Unknown]
  - Drug ineffective [Unknown]
  - Bronchoscopy [Unknown]
  - Oropharyngeal pain [Unknown]
  - Wrong technique in device usage process [Unknown]
  - Lower respiratory tract infection bacterial [Unknown]
  - Scar pain [Unknown]
  - Dyspnoea [Unknown]
  - Malaise [Unknown]
  - Ill-defined disorder [Unknown]
  - Weight decreased [Unknown]
